FAERS Safety Report 7136019-X (Version None)
Quarter: 2010Q4

REPORT INFORMATION
  Report Type: 
  Country: None (occurrence: None)
  Receive Date: 20101204
  Receipt Date: 20101122
  Transmission Date: 20110411
  Serious: Yes (Other)
  Sender: FDA-Public Use
  Company Number: US-BAYER-201042023NA

PATIENT

DRUGS (1)
  1. AVELOX [Suspect]
     Route: 048
     Dates: start: 20090101, end: 20090101

REACTIONS (6)
  - ABDOMINAL DISCOMFORT [None]
  - ABNORMAL BEHAVIOUR [None]
  - PRURITUS [None]
  - SENSORY DISTURBANCE [None]
  - SWELLING [None]
  - URTICARIA [None]
